FAERS Safety Report 19044648 (Version 1)
Quarter: 2021Q1

REPORT INFORMATION
  Report Type: Spontaneous
  Country: US (occurrence: US)
  Receive Date: 20210323
  Receipt Date: 20210323
  Transmission Date: 20210420
  Serious: Yes (Other)
  Sender: FDA-Public Use
  Company Number: US-GLAXOSMITHKLINE-US2021GSK067455

PATIENT
  Sex: Male

DRUGS (6)
  1. RANITIDINE CAPSULE [Suspect]
     Active Substance: RANITIDINE
     Indication: HYPERSENSITIVITY
     Dosage: UNK UNK, WE
     Route: 065
     Dates: start: 200311, end: 201506
  2. RANITIDINE. [Suspect]
     Active Substance: RANITIDINE
     Indication: HYPERSENSITIVITY
     Dosage: UNK, WE
     Route: 065
     Dates: start: 200311, end: 201506
  3. RANITIDINE. [Suspect]
     Active Substance: RANITIDINE
     Indication: HYPERSENSITIVITY
     Dosage: UNK, WE
     Route: 065
     Dates: start: 200311, end: 201506
  4. ZANTAC [Suspect]
     Active Substance: RANITIDINE HYDROCHLORIDE
     Indication: HYPERSENSITIVITY
     Dosage: UNK UNK, WE
     Route: 065
     Dates: start: 200311, end: 201506
  5. RANITIDINE. [Suspect]
     Active Substance: RANITIDINE
     Indication: HYPERSENSITIVITY
     Dosage: UNK UNK, WE
     Route: 065
     Dates: start: 200311, end: 201506
  6. ZANTAC [Suspect]
     Active Substance: RANITIDINE HYDROCHLORIDE
     Indication: HYPERSENSITIVITY
     Dosage: UNK UNK, WE
     Route: 065
     Dates: start: 200311, end: 201506

REACTIONS (1)
  - Prostate cancer [Unknown]
